FAERS Safety Report 5200395-5 (Version None)
Quarter: 2007Q1

REPORT INFORMATION
  Report Type: 
  Country: None (occurrence: None)
  Receive Date: 20070105
  Receipt Date: 20061226
  Transmission Date: 20070707
  Serious: Yes (Other)
  Sender: FDA-Public Use
  Company Number: US-PFIZER INC-2007000340

PATIENT
  Sex: Male

DRUGS (1)
  1. XANAX [Suspect]
     Indication: DRUG ABUSER

REACTIONS (3)
  - DRUG ABUSER [None]
  - HOMICIDE [None]
  - SOMNOLENCE [None]
